FAERS Safety Report 7583303-1 (Version None)
Quarter: 2011Q2

REPORT INFORMATION
  Report Type: 
  Country: None (occurrence: None)
  Receive Date: 20110623
  Receipt Date: 20110610
  Transmission Date: 20111010
  Serious: Yes (Life-Threatening, Hospitalization)
  Sender: FDA-Public Use
  Company Number: DSJ-2011-10194

PATIENT
  Age: 81 Year
  Sex: Male

DRUGS (6)
  1. AVOLVE (DUTASTERIDE) [Concomitant]
  2. OLMESARTAN MEDOXOMIL [Suspect]
     Indication: HYPERTENSION
     Dosage: 20 MG, PER ORAL
     Route: 048
  3. WARFARIN SODIUM [Concomitant]
  4. EVIPROSTAT (SERENOA REPENS) [Concomitant]
  5. URIEF (SILODOSIN) [Concomitant]
  6. BISOPROLOL FUMARATE [Concomitant]

REACTIONS (2)
  - DEPRESSED LEVEL OF CONSCIOUSNESS [None]
  - HEPATIC NEOPLASM MALIGNANT [None]
